FAERS Safety Report 9778705 (Version 2)
Quarter: 2015Q3

REPORT INFORMATION
  Report Type: Spontaneous
  Country: US (occurrence: US)
  Receive Date: 20131223
  Receipt Date: 20150722
  Transmission Date: 20151125
  Serious: Yes (Hospitalization)
  Sender: FDA-Public Use
  Company Number: US-BMSGILMSD-2010-0027244

PATIENT
  Sex: Female

DRUGS (4)
  1. SULFA [Concomitant]
     Active Substance: UNSPECIFIED INGREDIENT
  2. ACYCLOVIR. [Concomitant]
     Active Substance: ACYCLOVIR
  3. LASIX [Concomitant]
     Active Substance: FUROSEMIDE
  4. ATRIPLA [Suspect]
     Active Substance: EFAVIRENZ\EMTRICITABINE\TENOFOVIR DISOPROXIL FUMARATE
     Indication: HIV INFECTION

REACTIONS (1)
  - Pancreatitis [Unknown]
